FAERS Safety Report 24763218 (Version 1)
Quarter: 2024Q4

REPORT INFORMATION
  Report Type: Spontaneous
  Country: CN (occurrence: CN)
  Receive Date: 20241222
  Receipt Date: 20241222
  Transmission Date: 20250115
  Serious: Yes (Hospitalization, Other)
  Sender: BEIGENE
  Company Number: CN-BEIGENE-BGN-2024-020327

PATIENT

DRUGS (9)
  1. TISLELIZUMAB [Suspect]
     Active Substance: TISLELIZUMAB
     Indication: Lung neoplasm malignant
     Dosage: 200 MILLIGRAM, Q3WK
     Route: 041
     Dates: start: 20240726
  2. TISLELIZUMAB [Suspect]
     Active Substance: TISLELIZUMAB
     Dosage: 200 MILLIGRAM, Q3WK
     Route: 041
     Dates: start: 20240821
  3. TISLELIZUMAB [Suspect]
     Active Substance: TISLELIZUMAB
     Dosage: 200 MILLIGRAM, Q3WK
     Route: 041
     Dates: start: 20240921
  4. PACLITAXEL [Concomitant]
     Active Substance: PACLITAXEL
     Indication: Lung neoplasm malignant
     Dosage: UNK
     Dates: start: 20240726, end: 20240726
  5. PACLITAXEL [Concomitant]
     Active Substance: PACLITAXEL
     Dosage: UNK
     Dates: start: 20240821, end: 20240821
  6. PACLITAXEL [Concomitant]
     Active Substance: PACLITAXEL
     Dosage: UNK
     Dates: start: 20240921, end: 20240921
  7. NEDAPLATIN [Concomitant]
     Active Substance: NEDAPLATIN
     Indication: Lung neoplasm malignant
     Dosage: UNK
     Dates: start: 20240726, end: 20240726
  8. NEDAPLATIN [Concomitant]
     Active Substance: NEDAPLATIN
     Dosage: UNK
     Dates: start: 20240821, end: 20240821
  9. NEDAPLATIN [Concomitant]
     Active Substance: NEDAPLATIN
     Dosage: UNK
     Dates: start: 20240921, end: 20240921

REACTIONS (2)
  - Pneumonitis [Unknown]
  - Respiratory failure [Unknown]

NARRATIVE: CASE EVENT DATE: 20241123
